FAERS Safety Report 19323389 (Version 1)
Quarter: 2021Q2

REPORT INFORMATION
  Report Type: Spontaneous
  Country: DE (occurrence: JP)
  Receive Date: 20210528
  Receipt Date: 20210528
  Transmission Date: 20210717
  Serious: Yes (Other)
  Sender: FDA-Public Use
  Company Number: JP-ELI_LILLY_AND_COMPANY-JP202105012537

PATIENT
  Age: 72 Year
  Sex: Male

DRUGS (3)
  1. ERBITUX [Suspect]
     Active Substance: CETUXIMAB
     Indication: HYPOPHARYNGEAL CANCER STAGE IV
     Dosage: 394 MG/M2, EVERY 3 WEEKS
     Route: 042
  2. CISPLATIN. [Concomitant]
     Active Substance: CISPLATIN
     Indication: HYPOPHARYNGEAL CANCER STAGE IV
     Dosage: 158 MG/M2, CYCLICAL
     Route: 042
  3. 5?FU [FLUOROURACIL] [Concomitant]
     Active Substance: FLUOROURACIL
     Indication: HYPOPHARYNGEAL CANCER STAGE IV
     Dosage: 794 MG/M2, UNK
     Route: 042

REACTIONS (3)
  - Off label use [Unknown]
  - Atrial tachycardia [Recovered/Resolved]
  - Hypomagnesaemia [Recovered/Resolved]
